FAERS Safety Report 8600615-0 (Version None)
Quarter: 2012Q3

REPORT INFORMATION
  Report Type: 
  Country: None (occurrence: None)
  Receive Date: 20120803
  Receipt Date: 20120726
  Transmission Date: 20120928
  Serious: Yes (Other)
  Sender: FDA-Public Use
  Company Number: GER/UKI/12/0025206

PATIENT
  Age: 21 Year
  Sex: Female

DRUGS (3)
  1. FOLIC ACID [Concomitant]
  2. LAMOTRIGINE [Suspect]
     Indication: EPILEPSY
     Dosage: 300 MG, 1 IN 1 D,
  3. LAMOTRIGINE [Suspect]
     Indication: PRODUCT USED FOR UNKNOWN INDICATION
     Dosage: VAGINAL
     Route: 067

REACTIONS (2)
  - MATERNAL EXPOSURE DURING PREGNANCY [None]
  - CONVULSION [None]
